FAERS Safety Report 6925283-5 (Version None)
Quarter: 2010Q3

REPORT INFORMATION
  Report Type: 
  Country: None (occurrence: None)
  Receive Date: 20100810
  Receipt Date: 20100726
  Transmission Date: 20110219
  Serious: Yes (Other)
  Sender: FDA-Public Use
  Company Number: 1000015529

PATIENT
  Age: 2 Year
  Sex: Female

DRUGS (1)
  1. CARBAMAZEPINE [Suspect]
     Dosage: 15 MG/KG (15 MG/KG, 1 IN 1 D), ORAL
     Route: 048

REACTIONS (4)
  - CONDITION AGGRAVATED [None]
  - ENCEPHALOPATHY [None]
  - EPILEPSY [None]
  - PARADOXICAL DRUG REACTION [None]
